FAERS Safety Report 4524640-4 (Version None)
Quarter: 2004Q4

REPORT INFORMATION
  Report Type: 
  Country: None (occurrence: None)
  Receive Date: 20041117
  Receipt Date: 20030814
  Transmission Date: 20050328
  Serious: Yes (Other)
  Sender: FDA-Public Use
  Company Number: C2003-2140.01

PATIENT
  Age: 26 Year
  Sex: Male

DRUGS (6)
  1. CLOZAPINE [Suspect]
     Dosage: 50 MG QD, ORAL
     Route: 048
     Dates: start: 20030722, end: 20030801
  2. LORAZEPAM [Concomitant]
  3. CHLORPROMAZINE [Concomitant]
  4. LITHIUM [Concomitant]
  5. HALOPERIDOL [Concomitant]
  6. CLONAZEPAM [Concomitant]

REACTIONS (1)
  - NEUTROPENIA [None]
